FAERS Safety Report 5039716-5 (Version None)
Quarter: 2006Q2

REPORT INFORMATION
  Report Type: 
  Country: None (occurrence: None)
  Receive Date: 20060601
  Receipt Date: 20060106
  Transmission Date: 20061013
  Serious: No
  Sender: FDA-Public Use
  Company Number: 2006PV006714

PATIENT
  Age: 60 Year
  Sex: Male
  Weight: 107.5025 kg

DRUGS (5)
  1. BYETTA [Suspect]
     Indication: DIABETES MELLITUS NON-INSULIN-DEPENDENT
     Dosage: 10 MCG;BID;SC
     Route: 058
     Dates: start: 20051230
  2. PRILOSEC [Concomitant]
  3. GLUCOPHAGE [Concomitant]
  4. NOVOLOG MIX 70/30 [Concomitant]
  5. SLIDING SCALE INSULIN [Concomitant]

REACTIONS (3)
  - EARLY SATIETY [None]
  - NAUSEA [None]
  - WEIGHT DECREASED [None]
